FAERS Safety Report 19582331 (Version 1)
Quarter: 2021Q3

REPORT INFORMATION
  Report Type: Spontaneous
  Country: US (occurrence: US)
  Receive Date: 20210720
  Receipt Date: 20210720
  Transmission Date: 20211014
  Serious: Yes (Hospitalization)
  Sender: FDA-Public Use
  Company Number: None

PATIENT
  Age: 62 Year
  Sex: Female

DRUGS (2)
  1. EVEROLIMUS. [Suspect]
     Active Substance: EVEROLIMUS
     Indication: ORGAN TRANSPLANT
     Route: 048
     Dates: start: 20210330
  2. NONE LISTED [Concomitant]

REACTIONS (1)
  - Dehydration [None]

NARRATIVE: CASE EVENT DATE: 20210708
